FAERS Safety Report 8050897-1 (Version None)
Quarter: 2012Q1

REPORT INFORMATION
  Report Type: 
  Country: None (occurrence: None)
  Receive Date: 20120117
  Receipt Date: 20120109
  Transmission Date: 20120608
  Serious: Yes (Death, Hospitalization, Other)
  Sender: FDA-Public Use
  Company Number: PHEH2011US009550

PATIENT
  Sex: Male

DRUGS (14)
  1. NEUPOGEN [Concomitant]
     Indication: NEUTROPENIA
     Dosage: UNK
  2. LISINOPRIL [Concomitant]
     Dosage: UNK
  3. VALTREX [Concomitant]
     Dosage: UNK
  4. FOLIC ACID [Concomitant]
     Dosage: UNK
  5. EXJADE [Suspect]
     Indication: IRON OVERLOAD
     Dosage: 1000 MG, DAILY
     Route: 048
     Dates: start: 20090514, end: 20090822
  6. ASPIRIN [Concomitant]
     Dosage: UNK
  7. IMDUR [Concomitant]
     Dosage: UNK
  8. LASIX [Concomitant]
     Dosage: UNK
  9. NITROGLYCERIN [Concomitant]
     Dosage: UNK
  10. DIGOXIN [Concomitant]
     Dosage: UNK
  11. PERCOCET [Concomitant]
     Dosage: UNK
  12. COREG [Concomitant]
     Dosage: UNK
  13. BLOOD TRANSFUSION, AUXILIARY PRODUCTS [Concomitant]
     Dosage: UNK
  14. VYTORIN [Concomitant]
     Dosage: UNK

REACTIONS (13)
  - PLEURAL EFFUSION [None]
  - ANAEMIA [None]
  - LEUKOPENIA [None]
  - DIARRHOEA [None]
  - GENERAL PHYSICAL HEALTH DETERIORATION [None]
  - ASTHENIA [None]
  - OROPHARYNGEAL NEOPLASM BENIGN [None]
  - THROMBOCYTOPENIA [None]
  - DYSPNOEA [None]
  - PANCYTOPENIA [None]
  - BLOOD PRESSURE DECREASED [None]
  - PLEURAL MESOTHELIOMA [None]
  - NEUTROPENIA [None]
